FAERS Safety Report 8501781-8 (Version None)
Quarter: 2012Q3

REPORT INFORMATION
  Report Type: 
  Country: None (occurrence: None)
  Receive Date: 20120705
  Receipt Date: 20120705
  Transmission Date: 20120928
  Serious: Yes (Hospitalization)
  Sender: FDA-Public Use
  Company Number: None

PATIENT
  Age: 55 Year
  Sex: Female
  Weight: 79.2 kg

DRUGS (1)
  1. LEXAPRO [Suspect]
     Dosage: ONE TABLET DAILY PO
     Route: 048
     Dates: start: 20100315, end: 20120701

REACTIONS (3)
  - HYPONATRAEMIA [None]
  - DYSPNOEA [None]
  - WHEEZING [None]
